FAERS Safety Report 9114593 (Version 1)
Quarter: 2013Q1

REPORT INFORMATION
  Report Type: Spontaneous
  Country: US (occurrence: US)
  Receive Date: 20130128
  Receipt Date: 20130128
  Transmission Date: 20140127
  Serious: Yes (Other)
  Sender: FDA-Public Use
  Company Number: US-WATSON-2013-00839

PATIENT
  Age: 71 Year
  Sex: Female

DRUGS (3)
  1. PACLITAXEL [Suspect]
     Indication: OVARIAN EPITHELIAL CANCER STAGE III
     Dosage: UNK UNK, UNKNOWN
     Route: 065
  2. CARBOPLATIN (WATSON LABORATORIES) [Suspect]
     Indication: OVARIAN CANCER STAGE III
     Dosage: UNK, UNKNOWN
     Route: 065
  3. DEXAMETHASONE [Suspect]
     Dosage: 20 MG THE NIGHT BEFORE, 20 MG THE MORNING OF CHEMOTHERAPY, 8 MG DAILY FOR THE 3 DAYS AFTER
     Route: 065

REACTIONS (7)
  - Large intestine perforation [Recovered/Resolved]
  - Neutropenia [Unknown]
  - White blood cell count decreased [None]
  - Hypotension [None]
  - Tachycardia [None]
  - Sepsis [None]
  - Multi-organ failure [None]
